FAERS Safety Report 9097766 (Version 3)
Quarter: 2013Q3

REPORT INFORMATION
  Report Type: Report from Study
  Country: ES (occurrence: ES)
  Receive Date: 20130212
  Receipt Date: 20130821
  Transmission Date: 20140515
  Serious: Yes (Death, Life-Threatening, Hospitalization, Disabling, Other)
  Sender: FDA-Public Use
  Company Number: ES-MILLENNIUM PHARMACEUTICALS, INC.-2013-00950

PATIENT
  Sex: 0

DRUGS (5)
  1. VELCADE [Suspect]
     Indication: PLASMA CELL MYELOMA
     Dosage: UNK
     Route: 065
     Dates: start: 20120319, end: 20130114
  2. BENDAMUSTINE [Concomitant]
     Indication: PLASMA CELL MYELOMA
     Dosage: UNK
     Route: 065
     Dates: start: 20121026, end: 20130114
  3. DEXAMETHASON                       /00016001/ [Concomitant]
     Indication: PLASMA CELL MYELOMA
     Dosage: UNK
     Route: 065
     Dates: start: 20121026, end: 20130114
  4. ZOMETA [Concomitant]
     Dosage: UNK
     Dates: start: 20120910, end: 20130107
  5. DUROGESIC [Concomitant]
     Dosage: UNK
     Dates: start: 20130115, end: 20130125

REACTIONS (1)
  - Gastrointestinal haemorrhage [Fatal]
